FAERS Safety Report 5852631-X (Version None)
Quarter: 2008Q3

REPORT INFORMATION
  Report Type: 
  Country: None (occurrence: None)
  Receive Date: 20080821
  Receipt Date: 20080818
  Transmission Date: 20090109
  Serious: Yes (Life-Threatening, Hospitalization)
  Sender: FDA-Public Use
  Company Number: B0481935A

PATIENT
  Age: 70 Year
  Sex: Male

DRUGS (5)
  1. FLOLAN [Suspect]
     Indication: PULMONARY HYPERTENSION
     Route: 042
     Dates: start: 20041215
  2. DOBUTAMINE HCL [Concomitant]
     Route: 042
     Dates: start: 20070906, end: 20070927
  3. BOSENTAN [Concomitant]
     Route: 048
  4. NORADRENALINE [Concomitant]
     Route: 042
     Dates: start: 20070922, end: 20070927
  5. FUROSEMIDE [Concomitant]
     Dates: start: 20070909, end: 20070927

REACTIONS (5)
  - BONE MARROW FAILURE [None]
  - GASTROINTESTINAL HAEMORRHAGE [None]
  - HAEMORRHAGIC ANAEMIA [None]
  - PLATELET COUNT DECREASED [None]
  - VIRAL INFECTION [None]
